FAERS Safety Report 23445563 (Version 2)
Quarter: 2024Q4

REPORT INFORMATION
  Report Type: Spontaneous
  Country: CA (occurrence: CA)
  Receive Date: 20240126
  Receipt Date: 20241108
  Transmission Date: 20250115
  Serious: Yes (Other)
  Sender: CELLTRION
  Company Number: CA-CELLTRION INC.-2023CA015171

PATIENT

DRUGS (28)
  1. INFLECTRA [Suspect]
     Active Substance: INFLIXIMAB-DYYB
     Indication: Takayasu^s arteritis
     Dosage: 200 MG, INDUCTION DOSES AT WEEK 0, 2 AND 6, THEN EVERY 8 WEEKS
     Route: 042
     Dates: start: 20230816
  2. INFLECTRA [Suspect]
     Active Substance: INFLIXIMAB-DYYB
     Dosage: 200 MG, ON WEEK 2 (INDUCTION DOSES AT WEEK 0, 2 AND 6, THEN EVERY 8 WEEKS)
     Route: 042
     Dates: start: 20230830
  3. INFLECTRA [Suspect]
     Active Substance: INFLIXIMAB-DYYB
     Dosage: 200 MG, AFTER 4 WEEKS (WEEK 6 INDUCTION)
     Route: 042
     Dates: start: 20230927
  4. INFLECTRA [Suspect]
     Active Substance: INFLIXIMAB-DYYB
     Dosage: 240 MG, EVERY 8 WEEKS
     Route: 042
     Dates: start: 20231122
  5. INFLECTRA [Suspect]
     Active Substance: INFLIXIMAB-DYYB
     Dosage: 240 MG, EVERY 8 WEEKS
     Route: 042
     Dates: start: 20231122, end: 20240709
  6. INFLECTRA [Suspect]
     Active Substance: INFLIXIMAB-DYYB
     Dosage: 240MG, AFTER 8 WEEKS
     Route: 042
     Dates: start: 20240117
  7. INFLECTRA [Suspect]
     Active Substance: INFLIXIMAB-DYYB
     Dosage: 200 MG, INDUCTION DOSES AT WEEK 0, 2 AND 6, THEN EVERY 8 WEEKS(240MG, AFTER 8 WEEKS  )
     Route: 042
     Dates: start: 20240117
  8. INFLECTRA [Suspect]
     Active Substance: INFLIXIMAB-DYYB
     Dosage: 250 MG, EVERY 8 WEEKS
     Route: 042
     Dates: start: 20240904
  9. INFLECTRA [Suspect]
     Active Substance: INFLIXIMAB-DYYB
     Dosage: 250 MG, EVERY 8 WEEKS
     Route: 042
     Dates: start: 20241030
  10. ACETAMINOPHEN [Concomitant]
     Active Substance: ACETAMINOPHEN
     Indication: Premedication
     Dosage: UNK
     Dates: start: 20230830, end: 20230830
  11. ACETAMINOPHEN [Concomitant]
     Active Substance: ACETAMINOPHEN
     Dosage: UNK
     Dates: start: 20230927, end: 20230927
  12. ACETAMINOPHEN [Concomitant]
     Active Substance: ACETAMINOPHEN
     Dosage: 1000 MG
     Dates: start: 20240117, end: 20240117
  13. FOLIC ACID [Concomitant]
     Active Substance: FOLIC ACID
     Dosage: 5 MG
  14. ASPIRIN [Concomitant]
     Active Substance: ASPIRIN
     Dosage: 80 MG
  15. CALCIUM [Concomitant]
     Active Substance: CALCIUM
     Dosage: 500 MG
  16. DEXAMETHASONE [Concomitant]
     Active Substance: DEXAMETHASONE
     Indication: Premedication
     Dosage: UNK
     Dates: start: 20230830, end: 20230830
  17. DIPHENHYDRAMINE [Concomitant]
     Active Substance: DIPHENHYDRAMINE
     Indication: Premedication
     Dosage: UNK
     Dates: start: 20230830, end: 20230830
  18. DIPHENHYDRAMINE [Concomitant]
     Active Substance: DIPHENHYDRAMINE
     Dosage: UNK
     Dates: start: 20230927, end: 20230927
  19. DIPHENHYDRAMINE [Concomitant]
     Active Substance: DIPHENHYDRAMINE
     Dosage: 50 MG
     Dates: start: 20240117, end: 20240117
  20. FOLIC ACID [Concomitant]
     Active Substance: FOLIC ACID
     Dosage: 5 MG
  21. HYDROCORTISONE [Concomitant]
     Active Substance: HYDROCORTISONE
     Indication: Premedication
     Dosage: UNK
     Dates: start: 20230927, end: 20230927
  22. HYDROCORTISONE [Concomitant]
     Active Substance: HYDROCORTISONE
     Dosage: 200 MG
     Dates: start: 20240117, end: 20240117
  23. LEVOFLOXACIN [Concomitant]
     Active Substance: LEVOFLOXACIN
     Dosage: 40 MG
  24. MINERALS\VITAMINS [Concomitant]
     Active Substance: MINERALS\VITAMINS
     Dosage: UNK
  25. MEPRAN [Concomitant]
     Dosage: UNK [AVANT CHAQUE PERFUSION (MG)]
  26. PREDNISONE [Concomitant]
     Active Substance: PREDNISONE
     Dosage: 40 MG
  27. CHOLECALCIFEROL [Concomitant]
     Active Substance: CHOLECALCIFEROL
     Dosage: 10000 IU
  28. VITAMIN C [Concomitant]
     Active Substance: ASCORBIC ACID
     Dosage: UNK

REACTIONS (8)
  - Hypotension [Not Recovered/Not Resolved]
  - Premature delivery [Unknown]
  - Dizziness [Not Recovered/Not Resolved]
  - Maternal exposure during pregnancy [Unknown]
  - Blood pressure fluctuation [Unknown]
  - Hypertension [Unknown]
  - Incorrect dose administered [Unknown]
  - Off label use [Unknown]

NARRATIVE: CASE EVENT DATE: 20230816
